FAERS Safety Report 24187949 (Version 2)
Quarter: 2024Q3

REPORT INFORMATION
  Report Type: Spontaneous
  Country: GB (occurrence: GB)
  Receive Date: 20240808
  Receipt Date: 20240826
  Transmission Date: 20241017
  Serious: Yes (Hospitalization)
  Sender: JOHNSON AND JOHNSON
  Company Number: GB-JNJFOC-20240575139

PATIENT
  Age: 30 Year
  Sex: Male

DRUGS (1)
  1. MINOXIDIL [Suspect]
     Active Substance: MINOXIDIL
     Indication: Alopecia
     Route: 065
     Dates: start: 2023, end: 2024

REACTIONS (1)
  - Migraine [Unknown]

NARRATIVE: CASE EVENT DATE: 20240501
